FAERS Safety Report 4471104-2 (Version None)
Quarter: 2004Q4

REPORT INFORMATION
  Report Type: 
  Country: None (occurrence: None)
  Receive Date: 20041011
  Receipt Date: 20040930
  Transmission Date: 20050328
  Serious: Yes (Hospitalization)
  Sender: FDA-Public Use
  Company Number: PHBS2004JP13056

PATIENT
  Sex: Male

DRUGS (1)
  1. AREDIA [Suspect]
     Indication: HYPERCALCAEMIA
     Dosage: 30 MG/DAY
     Route: 042
     Dates: start: 20040926

REACTIONS (1)
  - INTERSTITIAL LUNG DISEASE [None]
